FAERS Safety Report 22889456 (Version 2)
Quarter: 2024Q1

REPORT INFORMATION
  Report Type: Spontaneous
  Country: US (occurrence: US)
  Receive Date: 20230831
  Receipt Date: 20240301
  Transmission Date: 20240410
  Serious: No
  Sender: FDA-Public Use
  Company Number: US-PFIZER INC-2020488849

PATIENT
  Age: 81 Year
  Sex: Female

DRUGS (2)
  1. ESTRING [Suspect]
     Active Substance: ESTRADIOL
     Dosage: UNK (INSERT RING INTO UPPER 1/3 OF VAGINA REPLACE AFTER 90 DAYS)
     Route: 067
  2. ESTRING [Suspect]
     Active Substance: ESTRADIOL
     Dosage: 2 MG [2 MG VAGINALLY EVERY 12 WEEKS/ESTRING 2 MG (7.5 MCG/24 HOUR) VAGINAL RING]
     Route: 067

REACTIONS (1)
  - Memory impairment [Unknown]
